FAERS Safety Report 21748848 (Version 3)
Quarter: 2023Q1

REPORT INFORMATION
  Report Type: Spontaneous
  Country: PK (occurrence: PK)
  Receive Date: 20221219
  Receipt Date: 20230120
  Transmission Date: 20230418
  Serious: Yes (Other)
  Sender: FDA-Public Use
  Company Number: PK-TAKEDA-2022TUS096767

PATIENT
  Age: 36 Year
  Sex: Male

DRUGS (1)
  1. ADCETRIS [Suspect]
     Active Substance: BRENTUXIMAB VEDOTIN
     Indication: Hodgkin^s disease
     Dosage: UNK
     Route: 042
     Dates: start: 20220223, end: 20221101

REACTIONS (2)
  - Hodgkin^s disease [Not Recovered/Not Resolved]
  - Therapy non-responder [Unknown]
